FAERS Safety Report 22113042 (Version 1)
Quarter: 2023Q1

REPORT INFORMATION
  Report Type: Spontaneous
  Country: SA (occurrence: SA)
  Receive Date: 20230320
  Receipt Date: 20230320
  Transmission Date: 20230418
  Serious: Yes (Other)
  Sender: FDA-Public Use
  Company Number: SA-AUROBINDO-AUR-APL-2023-011764

PATIENT
  Age: 29 Year
  Sex: Male

DRUGS (15)
  1. VALGANCICLOVIR [Suspect]
     Active Substance: VALGANCICLOVIR
     Indication: Prophylaxis
     Dosage: 450 MILLIGRAM, DAILY
     Route: 048
  2. VALGANCICLOVIR [Suspect]
     Active Substance: VALGANCICLOVIR
     Dosage: 900 MILLIGRAM, TWO TIMES A DAY
     Route: 048
  3. ALEMTUZUMAB [Suspect]
     Active Substance: ALEMTUZUMAB
     Indication: Immunosuppressant drug therapy
     Dosage: UNK
     Route: 058
  4. METHYLPREDNISOLONE [Suspect]
     Active Substance: METHYLPREDNISOLONE
     Indication: Immunosuppressant drug therapy
     Dosage: 500 MILLIGRAM
     Route: 042
  5. METHYLPREDNISOLONE [Suspect]
     Active Substance: METHYLPREDNISOLONE
     Dosage: 250 MILLIGRAM
     Route: 042
  6. METHYLPREDNISOLONE [Suspect]
     Active Substance: METHYLPREDNISOLONE
     Dosage: 125 MILLIGRAM
     Route: 042
  7. PREDNISONE [Suspect]
     Active Substance: PREDNISONE
     Indication: Immunosuppressant drug therapy
     Dosage: UNK
     Route: 048
  8. TACROLIMUS [Suspect]
     Active Substance: TACROLIMUS
     Indication: Immunosuppressant drug therapy
     Dosage: UNK
     Route: 065
  9. SIROLIMUS [Suspect]
     Active Substance: SIROLIMUS
     Indication: Immunosuppressant drug therapy
     Dosage: UNK
     Route: 065
  10. GANCICLOVIR [Suspect]
     Active Substance: GANCICLOVIR
     Indication: Cytomegalovirus infection
     Dosage: 5 MILLIGRAM/KILOGRAM, TWO TIMES A DAY
     Route: 042
  11. GANCICLOVIR [Suspect]
     Active Substance: GANCICLOVIR
     Dosage: 7.5 MILLIGRAM/KILOGRAM, TWO TIMES A DAY
     Route: 042
  12. HUMAN CYTOMEGALOVIRUS IMMUNE GLOBULIN [Suspect]
     Active Substance: HUMAN CYTOMEGALOVIRUS IMMUNE GLOBULIN
     Indication: Cytomegalovirus infection
     Dosage: UNK
     Route: 065
  13. FOSCARNET [Suspect]
     Active Substance: FOSCARNET
     Indication: Cytomegalovirus infection
     Dosage: 90 MILLIGRAM/KILOGRAM, TWO TIMES A DAY
     Route: 065
  14. LETERMOVIR [Concomitant]
     Active Substance: LETERMOVIR
     Indication: Product used for unknown indication
     Dosage: 960 MILLIGRAM, DAILY
     Route: 065
  15. LETERMOVIR [Concomitant]
     Active Substance: LETERMOVIR
     Dosage: 480 MILLIGRAM, TWO TIMES A DAY
     Route: 065

REACTIONS (2)
  - Cytomegalovirus viraemia [Unknown]
  - Drug ineffective [Unknown]
